FAERS Safety Report 9951302 (Version 1)
Quarter: 2014Q1

REPORT INFORMATION
  Report Type: Report from Study
  Country: US (occurrence: US)
  Receive Date: 20140304
  Receipt Date: 20140304
  Transmission Date: 20141002
  Serious: No
  Sender: FDA-Public Use
  Company Number: US-ABBVIE-13P-163-1071434-00

PATIENT
  Age: 54 Year
  Sex: Male

DRUGS (6)
  1. HUMIRA [Suspect]
     Indication: PSORIATIC ARTHROPATHY
     Dates: start: 20121221
  2. HYDROXYZINE HCL [Concomitant]
     Indication: HYPERSENSITIVITY
  3. SORIATANE [Concomitant]
     Indication: PSORIASIS
  4. VITAMIN D [Concomitant]
     Indication: SUPPLEMENTATION THERAPY
  5. METFORMIN [Concomitant]
     Indication: DIABETES MELLITUS
  6. PREVASTATIN [Concomitant]
     Indication: BLOOD CHOLESTEROL INCREASED

REACTIONS (2)
  - Psoriasis [Not Recovered/Not Resolved]
  - Pain [Not Recovered/Not Resolved]
